FAERS Safety Report 8802748 (Version 2)
Quarter: 2013Q1

REPORT INFORMATION
  Report Type: Spontaneous
  Country: IT (occurrence: IT)
  Receive Date: 20120921
  Receipt Date: 20130318
  Transmission Date: 20140127
  Serious: Yes (Hospitalization)
  Sender: FDA-Public Use
  Company Number: IT-009507513-1209ITA007679

PATIENT
  Age: 30 Year
  Sex: Male

DRUGS (1)
  1. NASONEX [Suspect]
     Dosage: 1 DF, UNK
     Route: 055
     Dates: start: 20120525, end: 20120525

REACTIONS (3)
  - Tremor [Recovering/Resolving]
  - Tachycardia [Recovering/Resolving]
  - Dyspnoea [Recovering/Resolving]
